FAERS Safety Report 10149990 (Version 1)
Quarter: 2014Q2

REPORT INFORMATION
  Report Type: Spontaneous
  Country: FR (occurrence: FR)
  Receive Date: 20140502
  Receipt Date: 20140502
  Transmission Date: 20141212
  Serious: Yes (Hospitalization, Other)
  Sender: FDA-Public Use
  Company Number: FR-PFIZER INC-2014118534

PATIENT
  Age: 21 Year
  Sex: Male
  Weight: 80 kg

DRUGS (9)
  1. EFFEXOR [Suspect]
     Dosage: 75 UNK, DAILY
     Route: 048
  2. EFFEXOR [Suspect]
     Dosage: UNK, (15 TABLETS MAXIMUM)
     Route: 048
     Dates: start: 20140405, end: 20140405
  3. XEROQUEL [Suspect]
     Dosage: UNK, SINGLE (15 TABLETS MAXIMUM)
     Route: 048
     Dates: start: 20140405, end: 20140405
  4. LEPONEX [Suspect]
     Dosage: UNK, SINGLE (15 TABLETS MAXIMUM)
     Route: 048
     Dates: start: 20140405, end: 20140405
  5. ZYPREXA [Suspect]
     Dosage: 1 DF, DAILY
     Route: 048
  6. ZYPREXA [Suspect]
     Dosage: UNK, (15 TABLETS MAXIMUM)
     Dates: start: 20140405, end: 20140405
  7. TERCIAN [Concomitant]
     Dosage: 12.5 MG, 2X/DAY
  8. LEVOTHYROX [Concomitant]
     Dosage: 25 UG, DAILY
  9. DEPAMIDE [Concomitant]
     Dosage: 1200 MG, 2X/DAY (2 DOSAGE FORMS OF 600MG)

REACTIONS (5)
  - Intentional overdose [Recovered/Resolved]
  - Pneumonia aspiration [Recovered/Resolved]
  - Blood creatine phosphokinase increased [Recovered/Resolved]
  - Neuroleptic malignant syndrome [Recovered/Resolved]
  - Somnolence [Recovered/Resolved]
